FAERS Safety Report 24423212 (Version 1)
Quarter: 2024Q4

REPORT INFORMATION
  Report Type: Spontaneous
  Country: US (occurrence: US)
  Receive Date: 20241010
  Receipt Date: 20241010
  Transmission Date: 20250115
  Serious: Yes (Other)
  Sender: BAYER
  Company Number: US-BAYER-2024A142757

PATIENT
  Age: 37 Year
  Sex: Male

DRUGS (1)
  1. KOVALTRY [Suspect]
     Active Substance: ANTIHEMOPHILIC FACTOR, HUMAN RECOMBINANT
     Indication: Factor VIII deficiency
     Dosage: 3600 U, PRN
     Route: 042

REACTIONS (4)
  - Tongue haemorrhage [None]
  - Haemorrhage [None]
  - Haemarthrosis [None]
  - Product dose omission issue [None]

NARRATIVE: CASE EVENT DATE: 20240701
